FAERS Safety Report 8579187-5 (Version None)
Quarter: 2012Q3

REPORT INFORMATION
  Report Type: 
  Country: None (occurrence: None)
  Receive Date: 20120808
  Receipt Date: 20120806
  Transmission Date: 20120928
  Serious: No
  Sender: FDA-Public Use
  Company Number: US-PFIZER INC-2012147272

PATIENT
  Age: 60 Year
  Sex: Female

DRUGS (7)
  1. CODEINE SULFATE [Suspect]
     Dosage: UNK
  2. BUTAZOLIDIN ALKA [Suspect]
     Dosage: UNK
  3. TOFRANIL [Suspect]
     Dosage: UNK
  4. LIMBITROL [Suspect]
     Dosage: UNK
  5. PSEUDOEPHEDRINE HCL [Suspect]
     Dosage: UNK
  6. STADOL [Suspect]
     Dosage: UNK
  7. MORPHINE SULFATE [Suspect]
     Dosage: UNK

REACTIONS (1)
  - NO ADVERSE EVENT [None]
